FAERS Safety Report 8973232 (Version 1)
Quarter: 2012Q4

REPORT INFORMATION
  Report Type: 
  Country: GR (occurrence: GR)
  Receive Date: 20121218
  Receipt Date: 20121218
  Transmission Date: 20130627
  Serious: Yes (Other)
  Sender: FDA-Public Use
  Company Number: GR-PFIZER INC-2012314525

PATIENT

DRUGS (1)
  1. TOVIAZ [Suspect]
     Indication: OVERACTIVE BLADDER
     Dosage: UNK

REACTIONS (2)
  - Liver disorder [Unknown]
  - Nephropathy [Unknown]
